FAERS Safety Report 15125337 (Version 2)
Quarter: 2018Q3

REPORT INFORMATION
  Report Type: Spontaneous
  Country: US (occurrence: US)
  Receive Date: 20180710
  Receipt Date: 20180718
  Transmission Date: 20181010
  Serious: Yes (Hospitalization, Other)
  Sender: FDA-Public Use
  Company Number: US-ALLERGAN-1834482US

PATIENT
  Age: 72 Year
  Sex: Female

DRUGS (1)
  1. NAMENDA [Suspect]
     Active Substance: MEMANTINE HYDROCHLORIDE
     Indication: VASCULAR DEMENTIA
     Dosage: 20 MG, QD
     Route: 048
     Dates: start: 201805, end: 20180629

REACTIONS (5)
  - Off label use [Unknown]
  - Renal impairment [Unknown]
  - Haemoglobin decreased [Unknown]
  - Gastrooesophageal reflux disease [Recovering/Resolving]
  - Haematocrit decreased [Unknown]
